FAERS Safety Report 12237251 (Version 1)
Quarter: 2016Q2

REPORT INFORMATION
  Report Type: Spontaneous
  Country: US (occurrence: US)
  Receive Date: 20160405
  Receipt Date: 20160405
  Transmission Date: 20160815
  Serious: No
  Sender: FDA-Public Use
  Company Number: US-BAYER-2016-059940

PATIENT
  Age: 8 Year
  Sex: Male
  Weight: 35.37 kg

DRUGS (2)
  1. CHILDREN CLARITIN ALLERGY [Suspect]
     Active Substance: LORATADINE
     Indication: SEASONAL ALLERGY
     Dosage: 1 DF, QD
     Route: 048
     Dates: start: 2014
  2. CLARITIN [Suspect]
     Active Substance: LORATADINE
     Indication: SEASONAL ALLERGY
     Dosage: 0.5 DF, QD
     Route: 048
     Dates: start: 20160325, end: 20160327

REACTIONS (5)
  - Rash [Not Recovered/Not Resolved]
  - Drug administered to patient of inappropriate age [None]
  - Product use issue [None]
  - Rash [Recovered/Resolved]
  - Product use issue [None]

NARRATIVE: CASE EVENT DATE: 201603
